FAERS Safety Report 6595107-7 (Version None)
Quarter: 2010Q1

REPORT INFORMATION
  Report Type: 
  Country: None (occurrence: None)
  Receive Date: 20100212
  Receipt Date: 20100202
  Transmission Date: 20100710
  Serious: Yes (Death)
  Sender: FDA-Public Use
  Company Number: 1000011340

PATIENT
  Age: 76 Year
  Sex: Male

DRUGS (5)
  1. MEMANTINE HCL [Suspect]
     Indication: DEMENTIA
     Dosage: 5 MG (5 MG, 1 IN 1 D), ORAL 20 MG (20 MG, 1 IN 1 D), ORAL
     Route: 048
     Dates: start: 20081216, end: 20090722
  2. MEMANTINE HCL [Suspect]
     Indication: DEMENTIA
     Dosage: 5 MG (5 MG, 1 IN 1 D), ORAL 20 MG (20 MG, 1 IN 1 D), ORAL
     Route: 048
     Dates: start: 20081120
  3. ANTI-ARRHYTHMICS [Concomitant]
  4. BRONCHODILATORS [Concomitant]
  5. ANTICOAGULANTS [Concomitant]

REACTIONS (3)
  - CARDIAC FAILURE [None]
  - FATIGUE [None]
  - SOMNOLENCE [None]
